FAERS Safety Report 23426110 (Version 1)
Quarter: 2024Q1

REPORT INFORMATION
  Report Type: Spontaneous
  Country: US (occurrence: US)
  Receive Date: 20240122
  Receipt Date: 20240122
  Transmission Date: 20240409
  Serious: No
  Sender: FDA-Public Use
  Company Number: US-ELI_LILLY_AND_COMPANY-US202401009239

PATIENT
  Age: 70 Year
  Sex: Female

DRUGS (2)
  1. EMGALITY [Interacting]
     Active Substance: GALCANEZUMAB-GNLM
     Indication: Headache
     Dosage: UNK UNK, UNKNOWN
     Route: 065
  2. VYEPTI [Interacting]
     Active Substance: EPTINEZUMAB-JJMR
     Indication: Headache
     Dosage: 300 MG, OTHER (ONCE EVERY THREE MONTHS)
     Route: 042

REACTIONS (8)
  - Drug interaction [Unknown]
  - Chapped lips [Unknown]
  - Feeding disorder [Unknown]
  - Insomnia [Unknown]
  - Dyspnoea [Unknown]
  - Therapeutic response shortened [Unknown]
  - Urticaria [Unknown]
  - Rash [Unknown]

NARRATIVE: CASE EVENT DATE: 20231202
